FAERS Safety Report 8270178-0 (Version None)
Quarter: 2012Q2

REPORT INFORMATION
  Report Type: 
  Country: None (occurrence: None)
  Receive Date: 20120410
  Receipt Date: 20120406
  Transmission Date: 20120825
  Serious: Yes (Life-Threatening, Hospitalization, Other)
  Sender: FDA-Public Use
  Company Number: PHEH2012US004370

PATIENT
  Sex: Female

DRUGS (1)
  1. RECLAST [Suspect]
     Indication: OSTEOPOROSIS
     Dosage: 5 MG/100 ML
     Route: 042
     Dates: start: 20120217

REACTIONS (17)
  - BLOOD POTASSIUM DECREASED [None]
  - ASTHENIA [None]
  - URINE OUTPUT DECREASED [None]
  - PAIN [None]
  - HEADACHE [None]
  - ABDOMINAL DISTENSION [None]
  - OCULAR HYPERAEMIA [None]
  - BONE PAIN [None]
  - FEELING ABNORMAL [None]
  - GAIT DISTURBANCE [None]
  - RENAL IMPAIRMENT [None]
  - ELECTROLYTE IMBALANCE [None]
  - BLOOD CALCIUM DECREASED [None]
  - MOBILITY DECREASED [None]
  - MYALGIA [None]
  - ASTHENOPIA [None]
  - HYPOTENSION [None]
